FAERS Safety Report 4400883-5 (Version None)
Quarter: 2004Q3

REPORT INFORMATION
  Report Type: 
  Country: None (occurrence: None)
  Receive Date: 20040907
  Receipt Date: 20030718
  Transmission Date: 20050211
  Serious: No
  Sender: FDA-Public Use
  Company Number: US-BRISTOL-MYERS SQUIBB COMPANY-12330403

PATIENT
  Age: 61 Year
  Sex: Male
  Weight: 82 kg

DRUGS (9)
  1. WARFARIN SODIUM [Suspect]
     Indication: ATRIAL FIBRILLATION
     Dosage: NUMBER OF DOSAGES:  1/2 5 MG TABLET DAILY FOR 6 DAYS, ALTERNATING WITH 1 5 MG TABLET FOR ONE DAY.
     Route: 048
  2. LISINOPRIL AND HYDROCHLOROTHIAZIDE [Suspect]
     Indication: HYPERTENSION
  3. DIOVAN HCT [Suspect]
     Indication: HYPERTENSION
  4. BEXTRA [Suspect]
  5. LIPITOR [Concomitant]
  6. PRILOSEC [Concomitant]
  7. LOTREL [Concomitant]
  8. CENTURY [Concomitant]
  9. VITAMIN E [Concomitant]

REACTIONS (4)
  - ARTHRALGIA [None]
  - BURNING SENSATION [None]
  - HYPOAESTHESIA [None]
  - JOINT SWELLING [None]
